FAERS Safety Report 13168085 (Version 1)
Quarter: 2017Q1

REPORT INFORMATION
  Report Type: Spontaneous
  Country: GB (occurrence: GB)
  Receive Date: 20170131
  Receipt Date: 20170131
  Transmission Date: 20170428
  Serious: Yes (Hospitalization, Other)
  Sender: FDA-Public Use
  Company Number: GB-SEBELA IRELAND LIMITED-2017SEB00011

PATIENT
  Age: 63 Year
  Sex: Male

DRUGS (2)
  1. HYDROCORTISONE. [Suspect]
     Active Substance: HYDROCORTISONE
     Indication: ADDISON^S DISEASE
     Dosage: 100 MG, 1X/DAY
     Route: 065
  2. HYDROCORTISONE. [Suspect]
     Active Substance: HYDROCORTISONE
     Dosage: 60 MG, 1X/DAY
     Route: 048

REACTIONS (4)
  - Epidural lipomatosis [Recovering/Resolving]
  - Paraparesis [Recovering/Resolving]
  - Cushingoid [Unknown]
  - Spinal cord compression [Recovering/Resolving]
